FAERS Safety Report 7981342-X (Version None)
Quarter: 2011Q4

REPORT INFORMATION
  Report Type: 
  Country: None (occurrence: None)
  Receive Date: 20111213
  Receipt Date: 20111128
  Transmission Date: 20120403
  Serious: Yes (Hospitalization)
  Sender: FDA-Public Use
  Company Number: JP-2011-12050

PATIENT
  Age: 79 Year
  Sex: Female

DRUGS (1)
  1. PLETAL [Suspect]
     Indication: CEREBRAL INFARCTION
     Dosage: 200 MG MILLIGRAM(S), DAILY DOSE, ORAL, ORAL
     Route: 048
     Dates: start: 20090101, end: 20090101

REACTIONS (6)
  - ABDOMINAL PAIN [None]
  - DYSSTASIA [None]
  - GAIT DISTURBANCE [None]
  - BACK PAIN [None]
  - COUGH [None]
  - MUSCLE HAEMORRHAGE [None]
